FAERS Safety Report 13891757 (Version 1)
Quarter: 2017Q3

REPORT INFORMATION
  Report Type: Spontaneous
  Country: FR (occurrence: FR)
  Receive Date: 20170822
  Receipt Date: 20170822
  Transmission Date: 20171127
  Serious: Yes (Hospitalization)
  Sender: FDA-Public Use
  Company Number: FR-ACCORD-057472

PATIENT
  Age: 69 Year
  Sex: Male

DRUGS (17)
  1. TAHOR [Concomitant]
     Active Substance: ATORVASTATIN CALCIUM
     Route: 048
  2. OMEPRAZOLE. [Concomitant]
     Active Substance: OMEPRAZOLE
     Route: 048
  3. ALLOPURINOL. [Concomitant]
     Active Substance: ALLOPURINOL
     Dosage: STRENGTH: 300 MG
  4. URAPIDIL [Concomitant]
     Active Substance: URAPIDIL
     Dosage: STRENGTH: 30 MG
     Route: 048
  5. VALACICLOVIR [Concomitant]
     Active Substance: VALACYCLOVIR HYDROCHLORIDE
     Dosage: STRENGTH: 500 MG
     Route: 048
  6. NEODEX [Concomitant]
     Active Substance: DEXAMETHASONE\NEOMYCIN
     Dosage: STRENGTH: 40 MG
     Route: 048
     Dates: start: 20170527, end: 20170628
  7. CYTARABINE ACCORD [Suspect]
     Active Substance: CYTARABINE
     Indication: DIFFUSE LARGE B-CELL LYMPHOMA
     Route: 042
     Dates: start: 20170524
  8. OXALIPLATIN ACCORD [Suspect]
     Active Substance: OXALIPLATIN
     Indication: DIFFUSE LARGE B-CELL LYMPHOMA
     Dates: start: 20170524
  9. ZOPICLONE [Concomitant]
     Active Substance: ZOPICLONE
     Route: 048
  10. PRIMPERAN [Concomitant]
     Active Substance: METOCLOPRAMIDE HYDROCHLORIDE
     Dosage: STRENGTH: 10 MG
     Route: 048
  11. BISOPROLOL/BISOPROLOL FUMARATE/BISOPROLOL HEMIFUMARATE [Concomitant]
     Route: 048
  12. KAYEXALATE [Concomitant]
     Active Substance: SODIUM POLYSTYRENE SULFONATE
     Route: 048
  13. GRANOCYTE [Concomitant]
     Active Substance: LENOGRASTIM
     Route: 057
     Dates: start: 20170530, end: 20170603
  14. MABTHERA [Suspect]
     Active Substance: RITUXIMAB
     Indication: DIFFUSE LARGE B-CELL LYMPHOMA
     Route: 042
     Dates: start: 20170524
  15. SULFAMETHOXAZOLE/TRIMETHOPRIM [Concomitant]
     Route: 048
  16. AMLOR [Concomitant]
     Active Substance: AMLODIPINE BESYLATE
     Dosage: STRENGTH: 5 MG
     Route: 048
  17. FOLIC ACID. [Concomitant]
     Active Substance: FOLIC ACID
     Route: 048

REACTIONS (2)
  - Guillain-Barre syndrome [Not Recovered/Not Resolved]
  - Off label use [Unknown]

NARRATIVE: CASE EVENT DATE: 20170612
